FAERS Safety Report 12189414 (Version 2)
Quarter: 2016Q1

REPORT INFORMATION
  Report Type: Report from Study
  Country: US (occurrence: US)
  Receive Date: 20160317
  Receipt Date: 20160322
  Transmission Date: 20160526
  Serious: Yes (Hospitalization)
  Sender: FDA-Public Use
  Company Number: US-ABBVIE-16K-163-1584195-00

PATIENT
  Age: 59 Year
  Sex: Female
  Weight: 69.92 kg

DRUGS (1)
  1. HUMIRA [Suspect]
     Active Substance: ADALIMUMAB
     Indication: CROHN^S DISEASE
     Route: 058
     Dates: start: 20160215

REACTIONS (1)
  - Small intestinal stenosis [Recovering/Resolving]

NARRATIVE: CASE EVENT DATE: 20160310
